FAERS Safety Report 21114708 (Version 1)
Quarter: 2022Q3

REPORT INFORMATION
  Report Type: Spontaneous
  Country: US (occurrence: US)
  Receive Date: 20220721
  Receipt Date: 20220721
  Transmission Date: 20221027
  Serious: No
  Sender: FDA-Public Use
  Company Number: US-MEDEXUS PHARMA, INC.-2021MED00390

PATIENT
  Sex: Female

DRUGS (2)
  1. RASUVO [Suspect]
     Active Substance: METHOTREXATE SODIUM
     Indication: Arthritis
     Dosage: UNK, 1X/WEEK ON FRIDAYS; INJECTED INTO THE LEFT QUADRANT ON BELLY 2-3 INCHES FROM UMBILICUS
  2. RASUVO [Suspect]
     Active Substance: METHOTREXATE SODIUM
     Dosage: DOSES HAVE GONE UP AND DOWN, 1X/WEEK ON FRIDAYS

REACTIONS (3)
  - Influenza [Not Recovered/Not Resolved]
  - Weight decreased [Unknown]
  - Body temperature increased [Not Recovered/Not Resolved]
